FAERS Safety Report 10047304 (Version 1)
Quarter: 2014Q1

REPORT INFORMATION
  Report Type: Spontaneous
  Country: US (occurrence: US)
  Receive Date: 20140331
  Receipt Date: 20140331
  Transmission Date: 20141002
  Serious: No
  Sender: FDA-Public Use
  Company Number: US-MYLANLABS-2014S1000354

PATIENT
  Age: 60 Year
  Sex: Male
  Weight: 99.79 kg

DRUGS (4)
  1. FENTANYL TRANSDERMAL SYSTEM [Suspect]
     Indication: NECK PAIN
     Dosage: Q48H
     Route: 062
     Dates: start: 2006
  2. FENTANYL TRANSDERMAL SYSTEM [Suspect]
     Indication: BACK PAIN
     Dosage: Q48H
     Route: 062
     Dates: start: 2006
  3. FENTANYL TRANSDERMAL SYSTEM [Suspect]
     Indication: PAIN IN EXTREMITY
     Dosage: Q48H
     Route: 062
     Dates: start: 2006
  4. OXYCODONE [Concomitant]
     Indication: PAIN
     Route: 048

REACTIONS (2)
  - Application site pain [Not Recovered/Not Resolved]
  - Application site erythema [Not Recovered/Not Resolved]
